FAERS Safety Report 8802974 (Version 2)
Quarter: 2013Q1

REPORT INFORMATION
  Report Type: Spontaneous
  Country: MX (occurrence: MX)
  Receive Date: 20120924
  Receipt Date: 20130306
  Transmission Date: 20140127
  Serious: Yes (Hospitalization)
  Sender: FDA-Public Use
  Company Number: PHHY2012MX081637

PATIENT
  Age: 28 Year
  Sex: Female

DRUGS (2)
  1. MIFLONIDE [Suspect]
     Dosage: 1 DF, (1 APPLICATION DAILY, UNKNOWN MCG)
     Dates: start: 201204
  2. ONBREZ [Suspect]
     Indication: ASTHMA
     Dosage: 150 UG, (150 MCG DAILY)
     Dates: start: 201204

REACTIONS (3)
  - Malaise [Not Recovered/Not Resolved]
  - Asthmatic crisis [Recovered/Resolved]
  - Exposure during pregnancy [Unknown]
